FAERS Safety Report 5733799-2 (Version None)
Quarter: 2008Q2

REPORT INFORMATION
  Report Type: 
  Country: None (occurrence: None)
  Receive Date: 20080509
  Receipt Date: 20080430
  Transmission Date: 20081010
  Serious: Yes (Congenital Anomaly, Other)
  Sender: FDA-Public Use
  Company Number: GB-ABBOTT-07P-167-0374440-00

PATIENT
  Sex: Male

DRUGS (1)
  1. VALPROIC ACID [Suspect]
     Indication: DRUG EXPOSURE DURING PREGNANCY
     Route: 064

REACTIONS (48)
  - AGGRESSION [None]
  - ASOCIAL BEHAVIOUR [None]
  - AUTISM SPECTRUM DISORDER [None]
  - BRACHYCEPHALY [None]
  - CARDIAC MURMUR [None]
  - CARDIOMEGALY [None]
  - CONGENITAL CENTRAL NERVOUS SYSTEM ANOMALY [None]
  - CONGENITAL FLAT FEET [None]
  - CONGENITAL FOOT MALFORMATION [None]
  - CONGENITAL HAIR DISORDER [None]
  - CONGENITAL HEARING DISORDER [None]
  - CONGENITAL NOSE MALFORMATION [None]
  - CONGENITAL NYSTAGMUS [None]
  - CONGENITAL ORAL MALFORMATION [None]
  - CRYPTORCHISM [None]
  - DEFORMITY THORAX [None]
  - DEVELOPMENTAL DELAY [None]
  - DILATATION VENTRICULAR [None]
  - DRUG EXPOSURE DURING PREGNANCY [None]
  - DYSMORPHISM [None]
  - EAR MALFORMATION [None]
  - EXPRESSIVE LANGUAGE DISORDER [None]
  - FAILURE TO THRIVE [None]
  - FALLOT'S TETRALOGY [None]
  - FINE MOTOR DELAY [None]
  - FINGER DEFORMITY [None]
  - FOETAL ANTICONVULSANT SYNDROME [None]
  - FOETAL DISTRESS SYNDROME [None]
  - FOOT DEFORMITY [None]
  - HEART RATE ABNORMAL [None]
  - HYPOKINESIA [None]
  - HYPOSPADIAS [None]
  - JOINT INSTABILITY [None]
  - LEARNING DISORDER [None]
  - LIMB MALFORMATION [None]
  - LIP DISORDER [None]
  - LOW SET EARS [None]
  - NIPPLE DISORDER [None]
  - OBSESSIVE THOUGHTS [None]
  - PLEURAL EFFUSION [None]
  - PULMONARY VALVE INCOMPETENCE [None]
  - PULMONARY VALVE STENOSIS [None]
  - RETRACTED NIPPLE [None]
  - SKULL MALFORMATION [None]
  - SPEECH DISORDER DEVELOPMENTAL [None]
  - SURGICAL FAILURE [None]
  - TALIPES [None]
  - URETHRAL FISTULA [None]
